FAERS Safety Report 6055707-X (Version None)
Quarter: 2009Q1

REPORT INFORMATION
  Report Type: 
  Country: None (occurrence: None)
  Receive Date: 20090128
  Receipt Date: 20081216
  Transmission Date: 20090719
  Serious: Yes (Hospitalization)
  Sender: FDA-Public Use
  Company Number: US-PFIZER INC-2008155546

PATIENT
  Sex: Male

DRUGS (1)
  1. MARAVIROC [Suspect]
     Indication: HIV INFECTION CDC GROUP I
     Dosage: 300 MG, 2X/DAY
     Route: 048
     Dates: start: 20060329

REACTIONS (2)
  - DIARRHOEA [None]
  - NAUSEA [None]
